FAERS Safety Report 9037571 (Version 2)
Quarter: 2013Q2

REPORT INFORMATION
  Report Type: Spontaneous
  Country: US (occurrence: None)
  Receive Date: 20120426
  Receipt Date: 20130107
  Transmission Date: 20140414
  Serious: Yes (Other)
  Sender: FDA-Public Use
  Company Number: PHHY2011US37054

PATIENT
  Age: 50 Year
  Sex: Female
  Weight: 78.5 kg

DRUGS (1)
  1. GILENYA (FTY) CAPSULE, 0.5MG [Suspect]
     Indication: MULTIPLE SCLEROSIS
     Dosage: 0.5 MG, QD, ORAL
     Route: 048
     Dates: start: 201104

REACTIONS (7)
  - Oedema peripheral [None]
  - Weight increased [None]
  - Heart rate decreased [None]
  - Contusion [None]
  - Impaired healing [None]
  - Limb injury [None]
  - Lymphocyte count decreased [None]
